FAERS Safety Report 4432448-3 (Version None)
Quarter: 2004Q3

REPORT INFORMATION
  Report Type: 
  Country: None (occurrence: None)
  Receive Date: 20040825
  Receipt Date: 20030308
  Transmission Date: 20050211
  Serious: Yes (Disabling, Other)
  Sender: FDA-Public Use
  Company Number: PHHO2003DE03211

PATIENT
  Age: 34 Year
  Sex: Female
  Weight: 53 kg

DRUGS (3)
  1. TEGASEROD VS PLACEBO [Suspect]
     Indication: CONSTIPATION
     Dosage: 6 MG, BID
     Route: 048
     Dates: start: 20020517, end: 20030214
  2. TEBONIN [Concomitant]
  3. BUFLOMEDIL [Concomitant]

REACTIONS (4)
  - CAESAREAN SECTION [None]
  - DRUG EXPOSURE DURING PREGNANCY [None]
  - PLACENTAL INSUFFICIENCY [None]
  - PREGNANCY TEST POSITIVE [None]
